FAERS Safety Report 4741665-4 (Version None)
Quarter: 2005Q3

REPORT INFORMATION
  Report Type: 
  Country: None (occurrence: None)
  Receive Date: 20050801
  Receipt Date: 20050628
  Transmission Date: 20060218
  Serious: No
  Sender: FDA-Public Use
  Company Number: 2005PV000154

PATIENT
  Age: 75 Year
  Sex: Female
  Weight: 61.2356 kg

DRUGS (14)
  1. BYETTA [Suspect]
     Indication: DIABETES MELLITUS NON-INSULIN-DEPENDENT
     Dosage: 5 UG;BID;SC
     Route: 058
     Dates: start: 20050624
  2. AMARYL [Concomitant]
  3. GEMFIBROZIL [Concomitant]
  4. METFORMIN [Concomitant]
  5. ZETIA [Concomitant]
  6. COZAAR [Concomitant]
  7. SYNTHROID [Concomitant]
  8. ASPIRIN [Concomitant]
  9. ESTER-C [Concomitant]
  10. VITAMIN B COMPLEX CAP [Concomitant]
  11. FLAXSEED OIL [Concomitant]
  12. FISH OIL CONCENTRATE [Concomitant]
  13. TIMOLOL MALEATE [Concomitant]
  14. RESTASIS [Concomitant]

REACTIONS (1)
  - INJECTION SITE HAEMORRHAGE [None]
